FAERS Safety Report 20835818 (Version 1)
Quarter: 2022Q2

REPORT INFORMATION
  Report Type: Report from Study
  Country: US (occurrence: US)
  Receive Date: 20220516
  Receipt Date: 20220516
  Transmission Date: 20220721
  Serious: Yes (Other)
  Sender: FDA-Public Use
  Company Number: US-UCBSA-2022018475

PATIENT
  Sex: Male

DRUGS (3)
  1. LACOSAMIDE [Suspect]
     Active Substance: LACOSAMIDE
     Indication: Seizure
     Dosage: 100 MILLIGRAM, 2X/DAY (BID)
  2. ELIQUIS [Concomitant]
     Active Substance: APIXABAN
  3. AUGMENTIN [Concomitant]
     Active Substance: AMOXICILLIN\CLAVULANATE POTASSIUM
     Indication: Decubitus ulcer

REACTIONS (6)
  - Transient ischaemic attack [Unknown]
  - COVID-19 [Unknown]
  - Platelet count decreased [Unknown]
  - Decubitus ulcer [Unknown]
  - Hospice care [Unknown]
  - Incorrect route of product administration [Unknown]
